FAERS Safety Report 6215754-1 (Version None)
Quarter: 2009Q2

REPORT INFORMATION
  Report Type: 
  Country: None (occurrence: None)
  Receive Date: 20090605
  Receipt Date: 20090526
  Transmission Date: 20091009
  Serious: Yes (Other)
  Sender: FDA-Public Use
  Company Number: US-BAXTER-2009BH008699

PATIENT
  Age: 15 Year
  Sex: Male

DRUGS (5)
  1. GAMMAGARD LIQUID [Suspect]
     Indication: IMMUNODEFICIENCY COMMON VARIABLE
     Route: 042
     Dates: start: 20090512, end: 20090512
  2. CARIMUNE [Suspect]
     Indication: IMMUNODEFICIENCY COMMON VARIABLE
     Route: 042
  3. ACETAMINOPHEN [Concomitant]
  4. DIPHENHYDRAMINE HCL [Concomitant]
  5. HYDROCORTISONE [Concomitant]

REACTIONS (4)
  - CHILLS [None]
  - DRUG INTOLERANCE [None]
  - PYREXIA [None]
  - TREMOR [None]
